FAERS Safety Report 7361681-6 (Version None)
Quarter: 2011Q1

REPORT INFORMATION
  Report Type: 
  Country: None (occurrence: None)
  Receive Date: 20110318
  Receipt Date: 20110308
  Transmission Date: 20110831
  Serious: Yes (Other)
  Sender: FDA-Public Use
  Company Number: US-JNJFOC-20110305700

PATIENT
  Age: 2 Year
  Sex: Male
  Weight: 15.88 kg

DRUGS (2)
  1. PEPCID COMPLETE BERRY [Suspect]
     Route: 048
  2. PEPCID COMPLETE BERRY [Suspect]
     Indication: ACCIDENTAL EXPOSURE
     Dosage: 1-2 CHEWABLE TABLETS
     Route: 048

REACTIONS (4)
  - ACCIDENTAL DRUG INTAKE BY CHILD [None]
  - ACCIDENTAL OVERDOSE [None]
  - PRURITUS [None]
  - ERYTHEMA [None]
